FAERS Safety Report 19860370 (Version 7)
Quarter: 2022Q2

REPORT INFORMATION
  Report Type: Report from Study
  Country: US (occurrence: US)
  Receive Date: 20210920
  Receipt Date: 20220409
  Transmission Date: 20220720
  Serious: No
  Sender: FDA-Public Use
  Company Number: NVSC2021US213407

PATIENT
  Sex: Female

DRUGS (1)
  1. ENTRESTO [Suspect]
     Active Substance: SACUBITRIL\VALSARTAN
     Indication: Product used for unknown indication
     Dosage: 1 DF, BID (97/103 MG)
     Route: 048
     Dates: start: 202105

REACTIONS (8)
  - Weight increased [Unknown]
  - Sinusitis [Unknown]
  - Sneezing [Unknown]
  - Throat clearing [Unknown]
  - Dysphonia [Unknown]
  - Toothache [Unknown]
  - Visual impairment [Unknown]
  - Cough [Unknown]
